FAERS Safety Report 15633098 (Version 2)
Quarter: 2018Q4

REPORT INFORMATION
  Report Type: Spontaneous
  Country: PL (occurrence: PL)
  Receive Date: 20181119
  Receipt Date: 20181129
  Transmission Date: 20190205
  Serious: Yes (Hospitalization, Other)
  Sender: FDA-Public Use
  Company Number: PL-SA-2018SA199646

PATIENT
  Age: 60 Year
  Sex: Male

DRUGS (3)
  1. INSULIN HUMAN NOS [Suspect]
     Active Substance: INSULIN HUMAN
     Indication: TYPE 2 DIABETES MELLITUS
     Dosage: 3 TIMES A DAY BEFORE MEALS IN DOSES DEPENDING ON GLYCEMIC LEVEL (APPROX. 10-12 IU)
     Dates: start: 201105
  2. INSULIN GLARGINE [Suspect]
     Active Substance: INSULIN GLARGINE
     Indication: TYPE 2 DIABETES MELLITUS
     Dosage: 3 TIMES A DAY BEFORE MEALS IN DOSES DEPENDING ON GLYCEMIC LEVEL (APPROX. 10-12 IU)
     Dates: start: 201105, end: 201106
  3. PREDNISONE. [Suspect]
     Active Substance: PREDNISONE
     Indication: DRUG-INDUCED LIVER INJURY
     Dosage: PREDNISONE PRESCRIBED FOR ONE MONTH IN REDUCING DOSES
     Dates: start: 201105, end: 201106

REACTIONS (4)
  - Hyperglycaemia [Recovered/Resolved]
  - Jaundice [Recovered/Resolved]
  - Drug-induced liver injury [Recovered/Resolved]
  - Drug interaction [Unknown]

NARRATIVE: CASE EVENT DATE: 201106
